FAERS Safety Report 5903490-8 (Version None)
Quarter: 2008Q3

REPORT INFORMATION
  Report Type: 
  Country: None (occurrence: None)
  Receive Date: 20080930
  Receipt Date: 20080924
  Transmission Date: 20090109
  Serious: Yes (Other)
  Sender: FDA-Public Use
  Company Number: AU-NOVOPROD-276354

PATIENT
  Age: 64 Year
  Sex: Male
  Weight: 106 kg

DRUGS (6)
  1. PROTAPHANE PENFILL [Suspect]
     Indication: INSULIN-REQUIRING TYPE 2 DIABETES MELLITUS
     Dates: start: 19960101, end: 20080401
  2. ACTRAPID HM PENFILL [Suspect]
     Indication: INSULIN-REQUIRING TYPE 2 DIABETES MELLITUS
  3. NOVORAPID FLEXPEN [Concomitant]
     Indication: DRUG USE FOR UNKNOWN INDICATION
  4. AVAPRO [Concomitant]
     Dosage: 300 MG, QD
  5. CRESTOR [Concomitant]
     Dosage: 40 MG, QD
  6. WARFARIN SODIUM [Concomitant]
     Dosage: 3 MG, QD

REACTIONS (1)
  - ATYPICAL MYCOBACTERIAL INFECTION [None]
